FAERS Safety Report 22351572 (Version 5)
Quarter: 2024Q2

REPORT INFORMATION
  Report Type: Spontaneous
  Country: US (occurrence: US)
  Receive Date: 20230522
  Receipt Date: 20240531
  Transmission Date: 20240715
  Serious: Yes (Hospitalization, Other)
  Sender: FDA-Public Use
  Company Number: US-PFIZER INC-US-GBT-018413

PATIENT
  Age: 11 Year
  Sex: Female
  Weight: 54.43 kg

DRUGS (2)
  1. OXBRYTA [Suspect]
     Active Substance: VOXELOTOR
     Indication: Sickle cell disease
     Dosage: 1200 MG, 1X/DAY (TAKE 4 TABLETS; MIX IN 20 ML OF ROOM-TEMPERATURE, CLEAR LIQUID BEFORE SWALLOWING)
     Route: 048
  2. OXBRYTA [Suspect]
     Active Substance: VOXELOTOR
     Dosage: 1500 MG, 1X/DAY (FIVE TABLETS)
     Route: 048
     Dates: start: 20220522

REACTIONS (3)
  - Haemoglobin decreased [Unknown]
  - Weight increased [Unknown]
  - Influenza [Unknown]
